FAERS Safety Report 13779130 (Version 1)
Quarter: 2017Q3

REPORT INFORMATION
  Report Type: Spontaneous
  Country: JP (occurrence: JP)
  Receive Date: 20170721
  Receipt Date: 20170721
  Transmission Date: 20171127
  Serious: Yes (Life-Threatening)
  Sender: FDA-Public Use
  Company Number: JP-SA-2017SA130069

PATIENT
  Age: 58 Year
  Sex: Female

DRUGS (31)
  1. LANSOPRAZOLE. [Suspect]
     Active Substance: LANSOPRAZOLE
     Dosage: DOSAGE FORM: ORODISPERSIBLE TABLET
     Route: 048
     Dates: start: 20131105
  2. MYSLEE [Suspect]
     Active Substance: ZOLPIDEM TARTRATE
     Route: 048
     Dates: start: 20140428
  3. EURODIN (DIHYDROERGOCRISTINE MESYLATE) [Suspect]
     Active Substance: DIHYDROERGOCRISTINE MESYLATE
     Dosage: FREQ: BEFORE BEDTIME
     Route: 048
     Dates: start: 20140428
  4. LYRICA [Suspect]
     Active Substance: PREGABALIN
     Indication: FIBROMYALGIA
     Route: 048
     Dates: start: 20140115, end: 20140123
  5. CYMBALTA [Suspect]
     Active Substance: DULOXETINE HYDROCHLORIDE
     Indication: DEPRESSION
     Route: 048
     Dates: start: 20130611, end: 20140427
  6. LYRICA [Suspect]
     Active Substance: PREGABALIN
     Indication: FIBROMYALGIA
     Route: 048
     Dates: start: 20140107, end: 20140114
  7. MOHRUS [Suspect]
     Active Substance: KETOPROFEN
     Dosage: DOSAGE FORM: TAPE
     Route: 065
     Dates: start: 20150718
  8. MOHRUS [Suspect]
     Active Substance: KETOPROFEN
     Dosage: DOSAGE FORM: TAPE
     Route: 065
     Dates: start: 20160308
  9. ROZEREM [Suspect]
     Active Substance: RAMELTEON
     Route: 048
     Dates: start: 20140428
  10. LYRICA [Suspect]
     Active Substance: PREGABALIN
     Indication: FIBROMYALGIA
     Dosage: DOSE: 75 MG IN THE MORNING AND 150MG IN THE EVENING
     Route: 048
     Dates: start: 20140124, end: 20140131
  11. LOXONIN [Suspect]
     Active Substance: LOXOPROFEN SODIUM
     Route: 048
     Dates: start: 20140308
  12. REBAMIPIDE [Suspect]
     Active Substance: REBAMIPIDE
     Route: 048
     Dates: start: 20140308
  13. LOXONIN [Suspect]
     Active Substance: LOXOPROFEN SODIUM
     Route: 048
     Dates: start: 20130717, end: 20160307
  14. LYRICA [Suspect]
     Active Substance: PREGABALIN
     Indication: FIBROMYALGIA
     Route: 048
     Dates: start: 20140408, end: 20150218
  15. REBAMIPIDE [Suspect]
     Active Substance: REBAMIPIDE
     Route: 048
     Dates: start: 20130717, end: 20140307
  16. CYMBALTA [Suspect]
     Active Substance: DULOXETINE HYDROCHLORIDE
     Indication: DEPRESSION
     Route: 048
     Dates: start: 20170114
  17. ASCORBIC ACID/CALCIUM PANTOTHENATE/RIBOFLAVIN/THIAMINE HYDROCHLORIDE/PYRIDOXINE HYDROCHLORIDE/NICOTI [Suspect]
     Active Substance: ASCORBIC ACID\CALCIUM PANTOTHENATE\NIACINAMIDE\PYRIDOXINE\RIBOFLAVIN\THIAMINE
     Route: 048
     Dates: start: 20150718, end: 20160420
  18. ABILIFY [Concomitant]
     Active Substance: ARIPIPRAZOLE
     Route: 065
  19. ROZEREM [Suspect]
     Active Substance: RAMELTEON
     Route: 048
     Dates: start: 20130611, end: 20140427
  20. LYRICA [Suspect]
     Active Substance: PREGABALIN
     Indication: FIBROMYALGIA
     Dosage: DOSE: 125MG IN THE MORNING AND 150MG IN THE EVENING
     Route: 048
     Dates: start: 20150219, end: 20160307
  21. LYRICA [Suspect]
     Active Substance: PREGABALIN
     Indication: FIBROMYALGIA
     Dosage: DOSE: 125MG IN THE MORNING AND 150MG IN THE EVENING
     Route: 048
     Dates: start: 20140308, end: 20140407
  22. LYRICA [Suspect]
     Active Substance: PREGABALIN
     Indication: FIBROMYALGIA
     Route: 048
     Dates: start: 20140201, end: 20140307
  23. CYMBALTA [Suspect]
     Active Substance: DULOXETINE HYDROCHLORIDE
     Indication: DEPRESSION
     Route: 048
     Dates: start: 20140428
  24. NEUROTROPIN [Suspect]
     Active Substance: NEUROTROPIN
     Route: 048
     Dates: start: 20140308
  25. MECOBALAMIN [Suspect]
     Active Substance: METHYLCOBALAMIN
     Route: 048
     Dates: start: 20151111, end: 20160209
  26. PRIMPERAN [Concomitant]
     Active Substance: METOCLOPRAMIDE HYDROCHLORIDE
     Route: 065
  27. RISPERDAL [Concomitant]
     Active Substance: RISPERIDONE
     Route: 065
  28. LYRICA [Suspect]
     Active Substance: PREGABALIN
     Indication: FIBROMYALGIA
     Dosage: DOSE: 125MG IN THE MORNING AND 150MG IN THE EVENING
     Route: 048
     Dates: start: 20160405, end: 20170118
  29. LYRICA [Suspect]
     Active Substance: PREGABALIN
     Indication: FIBROMYALGIA
     Dosage: DOSE:50MG IN THE MORNING, 150MG IN THE EVENING
     Route: 048
     Dates: start: 20160308, end: 20160404
  30. BIOFERMIN [Concomitant]
     Active Substance: BACILLUS SUBTILIS\LACTOBACILLUS ACIDOPHILUS\STREPTOCOCCUS FAECAIS
     Route: 065
  31. ROHYPNOL [Concomitant]
     Active Substance: FLUNITRAZEPAM
     Route: 065

REACTIONS (17)
  - Hepatic function abnormal [Recovered/Resolved]
  - Jaundice [Recovered/Resolved]
  - Productive cough [Unknown]
  - Vomiting [Unknown]
  - Hepatosplenomegaly [Unknown]
  - Ascites [Recovered/Resolved]
  - Abdominal distension [Recovered/Resolved]
  - Hepatic steatosis [Unknown]
  - Asthenia [Unknown]
  - Alanine aminotransferase increased [Recovered/Resolved]
  - Cough [Unknown]
  - Dizziness [Unknown]
  - Weight decreased [Recovered/Resolved]
  - Diarrhoea [Unknown]
  - Aspartate aminotransferase increased [Recovered/Resolved]
  - Viral upper respiratory tract infection [Unknown]
  - Rhinorrhoea [Unknown]

NARRATIVE: CASE EVENT DATE: 20160224
